FAERS Safety Report 24661332 (Version 2)
Quarter: 2025Q1

REPORT INFORMATION
  Report Type: Report from Study
  Country: CA (occurrence: CA)
  Receive Date: 20241125
  Receipt Date: 20250225
  Transmission Date: 20250409
  Serious: Yes (Other)
  Sender: REGENERON
  Company Number: CA-BAYER-2024A164305

PATIENT
  Sex: Female

DRUGS (1)
  1. EYLEA [Suspect]
     Active Substance: AFLIBERCEPT
     Indication: Diabetic retinal oedema
     Dates: start: 20241114

REACTIONS (3)
  - Visual impairment [Unknown]
  - Eye symptom [Not Recovered/Not Resolved]
  - Vitreous floaters [Unknown]
